FAERS Safety Report 9193883 (Version 1)
Quarter: 2013Q1

REPORT INFORMATION
  Report Type: Spontaneous
  Country: JP (occurrence: JP)
  Receive Date: 20130327
  Receipt Date: 20130327
  Transmission Date: 20140127
  Serious: Yes (Death, Hospitalization, Other)
  Sender: FDA-Public Use
  Company Number: JP-PFIZER INC-2013094145

PATIENT
  Age: 7 Decade
  Sex: Male

DRUGS (3)
  1. FARMORUBICIN [Suspect]
     Indication: HEPATOCELLULAR CARCINOMA
     Dosage: 50 MG, UNK
     Route: 013
  2. LIPIODOL [Suspect]
     Indication: HEPATIC CANCER
     Dosage: 4 ML, UNK
     Route: 013
  3. GELPART [Suspect]
     Indication: HEPATIC CANCER
     Route: 013

REACTIONS (8)
  - Gas gangrene [Fatal]
  - Shock [Fatal]
  - Bacterial sepsis [Fatal]
  - Haemolysis [Fatal]
  - Hepatic necrosis [Fatal]
  - Liver abscess [Unknown]
  - Hyperventilation [Unknown]
  - Restlessness [Unknown]
